FAERS Safety Report 14978612 (Version 17)
Quarter: 2019Q3

REPORT INFORMATION
  Report Type: Spontaneous
  Country: CA (occurrence: CA)
  Receive Date: 20180606
  Receipt Date: 20190924
  Transmission Date: 20191004
  Serious: Yes (Other)
  Sender: FDA-Public Use
  Company Number: CA-CELLTRION INC.-2018CA019686

PATIENT

DRUGS (20)
  1. INFLECTRA [Suspect]
     Active Substance: INFLIXIMAB-DYYB
     Dosage: 730 MG EVERY 6 WEEKS
     Route: 042
     Dates: start: 20181023, end: 20181023
  2. INFLECTRA [Suspect]
     Active Substance: INFLIXIMAB-DYYB
     Dosage: 820 MG EVERY 6 WEEKS
     Route: 042
     Dates: start: 20190114, end: 20190522
  3. INFLECTRA [Suspect]
     Active Substance: INFLIXIMAB-DYYB
     Indication: COLITIS ULCERATIVE
     Dosage: 385 MG WEEK 0, 2, 6 THEN EVERY 8 WEEKS
     Route: 042
     Dates: start: 20180322, end: 20180504
  4. INFLECTRA [Suspect]
     Active Substance: INFLIXIMAB-DYYB
     Dosage: 385 MG, WEEK 0, 2, 6 THEN EVERY 8 WEEKS
     Route: 042
     Dates: start: 20180411, end: 20180411
  5. CORTISONE [Concomitant]
     Active Substance: CORTISONE
     Dosage: 40 MG, DAILY
     Route: 065
     Dates: start: 20180306
  6. INFLECTRA [Suspect]
     Active Substance: INFLIXIMAB-DYYB
     Dosage: 820 MG EVERY 6 WEEKS
     Route: 042
     Dates: start: 20190409, end: 20190409
  7. INFLECTRA [Suspect]
     Active Substance: INFLIXIMAB-DYYB
     Dosage: 820 MG EVERY 6 WEEKS
     Route: 042
     Dates: start: 20190522, end: 20190522
  8. SULFASALAZINE. [Concomitant]
     Active Substance: SULFASALAZINE
     Dosage: 3000 MG (500 MG 6 TABLETS), 1X/DAY
     Route: 048
     Dates: start: 2008
  9. CORTIMENT [Concomitant]
     Dosage: 9 MG, 1X/DAY
  10. INFLECTRA [Suspect]
     Active Substance: INFLIXIMAB-DYYB
     Dosage: 820 MG EVERY 6 WEEKS
     Route: 042
     Dates: start: 20190226, end: 20190226
  11. SALAZOPYRIN [Concomitant]
     Active Substance: SULFASALAZINE
     Dosage: 500 MG, DAILY DOSE: 9
     Route: 065
     Dates: start: 2003
  12. ASPIRIN. [Concomitant]
     Active Substance: ASPIRIN
     Indication: PAIN
     Dosage: UNK
     Route: 065
  13. INFLECTRA [Suspect]
     Active Substance: INFLIXIMAB-DYYB
     Dosage: 900 MG EVERY 6 WEEKS
     Route: 042
     Dates: start: 20190703
  14. INFLECTRA [Suspect]
     Active Substance: INFLIXIMAB-DYYB
     Dosage: 900 MG EVERY 6 WEEKS
     Route: 042
     Dates: start: 20190814
  15. INFLECTRA [Suspect]
     Active Substance: INFLIXIMAB-DYYB
     Dosage: 730 MG EVERY 6 WEEKS
     Route: 042
     Dates: start: 20180621, end: 20180621
  16. INFLECTRA [Suspect]
     Active Substance: INFLIXIMAB-DYYB
     Dosage: 730 MG EVERY 6 WEEKS
     Route: 042
     Dates: start: 20180801, end: 20180801
  17. INFLECTRA [Suspect]
     Active Substance: INFLIXIMAB-DYYB
     Dosage: 730 MG EVERY 6 WEEKS
     Route: 042
     Dates: start: 20180911, end: 20180911
  18. INFLECTRA [Suspect]
     Active Substance: INFLIXIMAB-DYYB
     Dosage: 730 MG EVERY 6 WEEKS
     Route: 042
     Dates: start: 20181203, end: 20181203
  19. CORTIMENT [Concomitant]
     Dosage: 9 MG, 1X/DAY (FOR 5 DAYS)
     Dates: start: 201805
  20. INFLECTRA [Suspect]
     Active Substance: INFLIXIMAB-DYYB
     Dosage: 385 MG, WEEK 0, 2, 6 THEN EVERY 8 WEEKS
     Route: 042
     Dates: start: 20180504, end: 20180504

REACTIONS (12)
  - Drug ineffective [Not Recovered/Not Resolved]
  - Condition aggravated [Not Recovered/Not Resolved]
  - Weight decreased [Unknown]
  - Large intestinal stenosis [Unknown]
  - Large intestine polyp [Unknown]
  - Infusion site pain [Recovered/Resolved]
  - Incorrect dose administered [Unknown]
  - Off label use [Unknown]
  - Blood pressure decreased [Unknown]
  - Infusion site extravasation [Unknown]
  - Erythema [Unknown]
  - Off label use [Unknown]

NARRATIVE: CASE EVENT DATE: 20180411
